FAERS Safety Report 9675892 (Version 1)
Quarter: 2013Q4

REPORT INFORMATION
  Report Type: Spontaneous
  Country: ES (occurrence: ES)
  Receive Date: 20131107
  Receipt Date: 20131107
  Transmission Date: 20140711
  Serious: Yes (Hospitalization)
  Sender: FDA-Public Use
  Company Number: ES-GLAXOSMITHKLINE-B0940188A

PATIENT
  Age: 45 Year
  Sex: Female

DRUGS (2)
  1. ELONTRIL [Suspect]
     Indication: PRODUCT USED FOR UNKNOWN INDICATION
     Dosage: 150MG PER DAY
     Route: 048
     Dates: start: 20130916, end: 20131003
  2. DEXKETOPROFEN [Concomitant]

REACTIONS (2)
  - Rash [Recovered/Resolved]
  - Henoch-Schonlein purpura [Recovered/Resolved]
